FAERS Safety Report 15383618 (Version 2)
Quarter: 2018Q4

REPORT INFORMATION
  Report Type: Spontaneous
  Country: US (occurrence: US)
  Receive Date: 20180913
  Receipt Date: 20181130
  Transmission Date: 20190204
  Serious: No
  Sender: FDA-Public Use
  Company Number: US-GREER LABORATORIES, INC.-2054909

PATIENT
  Age: 38 Year
  Sex: Male
  Weight: 100 kg

DRUGS (27)
  1. POLLENS - TREES, HICKORY, SHAGBARK CARYA OVATA [Suspect]
     Active Substance: CARYA OVATA POLLEN
     Route: 058
     Dates: start: 20180620
  2. POLLENS - TREES, COTTONWOOD, EASTERN, POPULUS DELTOIDES [Suspect]
     Active Substance: POPULUS DELTOIDES POLLEN
     Route: 058
     Dates: start: 20180620
  3. POLLENS - TREES, PECAN CARYA CARYA ILLINOENSIS [Suspect]
     Active Substance: CARYA ILLINOINENSIS POLLEN
     Route: 058
     Dates: start: 20180620
  4. POLLENS - TREES, SYCAMORE, PLATANUS OCCIDENTALIS [Suspect]
     Active Substance: PLATANUS OCCIDENTALIS POLLEN
     Route: 058
     Dates: start: 20180620
  5. POLLENS - GRASSES, JOHNSON GRASS SORGHUM HALEPENSE [Suspect]
     Active Substance: SORGHUM HALEPENSE POLLEN
     Route: 058
     Dates: start: 20180620
  6. STANDARDIZED BERMUDA GRASS [Suspect]
     Active Substance: CYNODON DACTYLON POLLEN
     Route: 058
     Dates: start: 20180620
  7. WHITE OAK [Suspect]
     Active Substance: QUERCUS ALBA POLLEN
     Route: 058
     Dates: start: 20180620
  8. POLLENS - TREES, BIRCH, RED/RIVER, BETULA NIGRA [Suspect]
     Active Substance: BETULA NIGRA POLLEN
     Route: 058
     Dates: start: 20180620
  9. MIXED FEATHERS [Suspect]
     Active Substance: ANAS PLATYRHYNCHOS FEATHER\ANSER ANSER FEATHER\GALLUS GALLUS FEATHER
     Route: 058
     Dates: start: 20180620
  10. RED MULBERRY POLLEN [Suspect]
     Active Substance: MORUS RUBRA POLLEN
     Route: 058
     Dates: start: 20180620
  11. POLLENS - TREES, MULBERRY, WHITE, MORUS ALBA [Suspect]
     Active Substance: MORUS ALBA POLLEN
     Route: 058
     Dates: start: 20180620
  12. POLLENS - WEEDS AND GARDEN PLANTS, PLANTAIN, ENGLISH PLANTAGO LANCEOLATA [Suspect]
     Active Substance: PLANTAGO LANCEOLATA POLLEN
     Route: 058
     Dates: start: 20180620
  13. POLLENS - WEEDS AND GARDEN PLANTS, PIGWEED, ROUGH REDROOT AMARANTHUS RETROFLEXUS [Suspect]
     Active Substance: AMARANTHUS RETROFLEXUS POLLEN
     Route: 058
     Dates: start: 20180620
  14. POLLENS - WEEDS, DOCK/SORREL MIX [Suspect]
     Active Substance: RUMEX ACETOSELLA POLLEN\RUMEX CRISPUS POLLEN
     Route: 058
     Dates: start: 20180620
  15. ANIMAL ALLERGENS, AP DOG HAIR AND DANDER CANIS SPP [Suspect]
     Active Substance: CANIS LUPUS FAMILIARIS DANDER\CANIS LUPUS FAMILIARIS HAIR
     Route: 058
  16. POLLENS - TREES, ELM, AMERICAN ULMUS AMERICANA [Suspect]
     Active Substance: ULMUS AMERICANA POLLEN
     Route: 058
     Dates: start: 20180620
  17. POLLENS - GRASSES, BAHIA GRASS PASPALUM NOTATUM [Suspect]
     Active Substance: PASPALUM NOTATUM POLLEN
     Route: 058
     Dates: start: 20180620
  18. ALLERGENIC EXTRACT- RYEGRASS, PERENNIAL LOLIUM PERENNE [Suspect]
     Active Substance: LOLIUM PERENNE POLLEN
     Route: 058
     Dates: start: 20180620
  19. STANDARDIZED MEADOW FESCUE GRASS [Suspect]
     Active Substance: FESTUCA PRATENSIS POLLEN
     Route: 058
     Dates: start: 20180620
  20. POLLENS - WEEDS AND GARDEN PLANTS, COCKLEBUR XANTHIUM STRUMARIUM [Suspect]
     Active Substance: XANTHIUM STRUMARIUM POLLEN
     Route: 058
     Dates: start: 20180620
  21. STANDARDIZED CAT HAIR [Suspect]
     Active Substance: FELIS CATUS HAIR
     Indication: RHINITIS ALLERGIC
     Route: 058
     Dates: start: 20180620
  22. STANDARDIZED MITE MIX [Suspect]
     Active Substance: DERMATOPHAGOIDES FARINAE\DERMATOPHAGOIDES PTERONYSSINUS
     Route: 058
     Dates: start: 20180620
  23. POLLENS - TREES, MAPLE, RED, ACER RUBRUM [Suspect]
     Active Substance: ACER RUBRUM POLLEN
     Route: 058
     Dates: start: 20180620
  24. POLLENS - TREES, ASH, WHITE FRAXINUS AMERICANA [Suspect]
     Active Substance: FRAXINUS AMERICANA POLLEN
     Route: 058
     Dates: start: 20180620
  25. POLLENS - WEEDS AND GARDEN PLANTS, RAGWEED MIX [Suspect]
     Active Substance: AMBROSIA ACANTHICARPA POLLEN\AMBROSIA PSILOSTACHYA POLLEN
     Route: 058
     Dates: start: 20180620
  26. POLLENS - TREES, CEDAR, RED JUNIPERUS VIRGINIANA [Suspect]
     Active Substance: JUNIPERUS VIRGINIANA POLLEN
     Route: 058
     Dates: start: 20180620
  27. POLLENS - WEEDS AND GARDEN PLANTS, LAMBS QUARTERS CHENOPODIUM ALBUM [Suspect]
     Active Substance: CHENOPODIUM ALBUM POLLEN
     Route: 058

REACTIONS (3)
  - Injection site induration [Recovered/Resolved]
  - Injection site erythema [Recovered/Resolved]
  - Arthralgia [Recovered/Resolved]

NARRATIVE: CASE EVENT DATE: 20180709
